FAERS Safety Report 9413362 (Version 3)
Quarter: 2013Q3

REPORT INFORMATION
  Report Type: Report from Study
  Country: BG (occurrence: BG)
  Receive Date: 20130722
  Receipt Date: 20130725
  Transmission Date: 20140515
  Serious: Yes (Other)
  Sender: FDA-Public Use
  Company Number: BG-ROCHE-1236993

PATIENT
  Age: 42 Year
  Sex: Male
  Weight: 83.6 kg

DRUGS (2)
  1. VEMURAFENIB [Suspect]
     Indication: MALIGNANT MELANOMA
     Dosage: DATE OF LAST DOSE PRIOR TO SAE: 15/MAY/2012
     Route: 048
     Dates: start: 20120417
  2. VEMURAFENIB [Suspect]
     Route: 065
     Dates: start: 20120417

REACTIONS (1)
  - Melanocytic naevus [Recovered/Resolved]
